FAERS Safety Report 6733970-7 (Version None)
Quarter: 2010Q2

REPORT INFORMATION
  Report Type: 
  Country: None (occurrence: None)
  Receive Date: 20100520
  Receipt Date: 20100511
  Transmission Date: 20101027
  Serious: Yes (Disabling, Other)
  Sender: FDA-Public Use
  Company Number: AU-PFIZER INC-2010040023

PATIENT
  Age: 66 Year
  Sex: Female
  Weight: 54 kg

DRUGS (4)
  1. LIPITOR [Suspect]
     Indication: HYPERLIPIDAEMIA
     Dosage: 20 MG, UNK
     Route: 048
     Dates: start: 20050503, end: 20100305
  2. CARTIA XT [Concomitant]
     Dosage: 100 MG, 1X/DAY
     Route: 048
  3. ADALAT [Concomitant]
     Indication: HYPERTENSION
     Dosage: 30 MG, 1X/DAY
     Route: 048
  4. PREMIA CONTINOUS [Concomitant]
     Indication: HORMONE REPLACEMENT THERAPY
     Dosage: 0.625/5
     Route: 048

REACTIONS (25)
  - ABDOMINAL PAIN UPPER [None]
  - ARTHRALGIA [None]
  - BACK PAIN [None]
  - BRONCHOPNEUMONIA [None]
  - DECREASED APPETITE [None]
  - DIPLEGIA [None]
  - DIZZINESS [None]
  - FALL [None]
  - FATIGUE [None]
  - FEELING COLD [None]
  - GASTRIC DILATATION [None]
  - GASTROINTESTINAL MOTILITY DISORDER [None]
  - GASTROOESOPHAGEAL REFLUX DISEASE [None]
  - HAIR GROWTH ABNORMAL [None]
  - HAIR TEXTURE ABNORMAL [None]
  - HYPERREFLEXIA [None]
  - HYPOAESTHESIA [None]
  - MUSCULAR WEAKNESS [None]
  - NAIL DISORDER [None]
  - NAUSEA [None]
  - PAIN IN EXTREMITY [None]
  - PALMAR ERYTHEMA [None]
  - RHABDOMYOLYSIS [None]
  - SENSORY LOSS [None]
  - WEIGHT DECREASED [None]
